FAERS Safety Report 11235158 (Version 2)
Quarter: 2015Q3

REPORT INFORMATION
  Report Type: Spontaneous
  Country: CH (occurrence: CH)
  Receive Date: 20150702
  Receipt Date: 20150703
  Transmission Date: 20151125
  Serious: Yes (Other)
  Sender: FDA-Public Use
  Company Number: PHHY2015CH076252

PATIENT
  Sex: Female
  Weight: 71 kg

DRUGS (1)
  1. CETALLERG [Suspect]
     Active Substance: CETIRIZINE HYDROCHLORIDE
     Indication: PRODUCT USED FOR UNKNOWN INDICATION
     Dosage: 10 MG, UNK
     Route: 048
     Dates: start: 2015, end: 2015

REACTIONS (1)
  - Breast swelling [Recovered/Resolved]

NARRATIVE: CASE EVENT DATE: 2015
